FAERS Safety Report 9704771 (Version 2)
Quarter: 2013Q4

REPORT INFORMATION
  Report Type: Report from Study
  Country: US (occurrence: US)
  Receive Date: 20131122
  Receipt Date: 20131122
  Transmission Date: 20140711
  Serious: Yes (Death, Other)
  Sender: FDA-Public Use
  Company Number: US-ROCHE-795786

PATIENT
  Sex: 0

DRUGS (4)
  1. RITUXIMAB [Suspect]
     Indication: BURKITT^S LYMPHOMA
     Route: 065
  2. CYCLOPHOSPHAMIDE [Suspect]
     Indication: BURKITT^S LYMPHOMA
     Dosage: ON DAY 15
     Route: 065
  3. VINCRISTINE [Suspect]
     Indication: BURKITT^S LYMPHOMA
     Route: 065
  4. METHOTREXATE [Suspect]
     Indication: BURKITT^S LYMPHOMA
     Dosage: ON DAY 15
     Route: 065

REACTIONS (22)
  - Encephalopathy [Fatal]
  - Fungal infection [Fatal]
  - Hepatic failure [Fatal]
  - Hepatitis B [Fatal]
  - Pneumonia [Fatal]
  - HIV infection [Fatal]
  - Thrombocytopenia [Unknown]
  - Infection [Unknown]
  - Hemiparesis [Unknown]
  - Lung infiltration [Unknown]
  - Neutropenia [Unknown]
  - Haematotoxicity [Unknown]
  - Febrile neutropenia [Unknown]
  - Metabolic disorder [Unknown]
  - Tumour lysis syndrome [Unknown]
  - Nervous system disorder [Unknown]
  - Thrombosis [Unknown]
  - Coagulopathy [Unknown]
  - Leukopenia [Unknown]
  - Gastrointestinal toxicity [Unknown]
  - Pain [Unknown]
  - Pneumonitis [Unknown]
